FAERS Safety Report 9571025 (Version 1)
Quarter: 2013Q4

REPORT INFORMATION
  Report Type: Spontaneous
  Country: US (occurrence: US)
  Receive Date: 20131001
  Receipt Date: 20131001
  Transmission Date: 20140711
  Serious: Yes (Other)
  Sender: FDA-Public Use
  Company Number: US-SUN PHARMACEUTICAL INDUSTRIES LTD-2013SUN04758

PATIENT
  Age: 2 Month
  Sex: Male

DRUGS (5)
  1. CHLOROTHIAZIDE SODIUM EQ 500 MG BASE/VIAL INJECTION [Suspect]
     Indication: PRODUCT USED FOR UNKNOWN INDICATION
     Dosage: 10 MG/KG, BID
     Route: 065
  2. FUROSEMIDE [Suspect]
     Indication: PRODUCT USED FOR UNKNOWN INDICATION
     Dosage: 1 MG/KG, BID
     Route: 065
  3. ENALAPRIL [Suspect]
     Indication: PRODUCT USED FOR UNKNOWN INDICATION
     Dosage: 0.05 MG/KG, UNK
     Route: 048
  4. ENALAPRIL [Suspect]
     Dosage: 0.01 MG/KG, UNK
     Route: 042
  5. ENALAPRIL [Suspect]
     Dosage: 0.005 MG/KG, UNK
     Route: 042

REACTIONS (4)
  - Proteinuria [Unknown]
  - Renal failure acute [Unknown]
  - Oliguria [Unknown]
  - Hypotension [Unknown]
